FAERS Safety Report 5720273-2 (Version None)
Quarter: 2008Q2

REPORT INFORMATION
  Report Type: 
  Country: None (occurrence: None)
  Receive Date: 20080428
  Receipt Date: 20080421
  Transmission Date: 20081010
  Serious: Yes (Death, Hospitalization)
  Sender: FDA-Public Use
  Company Number: KR-ROCHE-554973

PATIENT
  Sex: Male
  Weight: 80 kg

DRUGS (23)
  1. CAPECITABINE [Suspect]
     Indication: GASTRIC CANCER
     Dosage: UNIT REPORTED AS 2000 MG, FREQUENCY REPORTED AS DAY 1 TO DAY 14 EVERY 3 WEEKS.  ROUTE REPOTED AS BID
     Route: 048
     Dates: start: 20080307, end: 20080326
  2. BLINDED BEVACIZUMAB [Suspect]
     Indication: GASTRIC CANCER
     Dosage: UNITS REPORTED AS 800 MG, FREQUENCY REPORTED AS DAY 1, EVERY 3 WEEKS. DOSAGE FORM REPORTED:INFUSION
     Route: 042
     Dates: start: 20080307, end: 20080326
  3. CISPLATIN [Suspect]
     Indication: GASTRIC CANCER
     Dosage: UNITS REPORTED AS 155 MG, FREQUENCY REPORTED AS DAY 1, EVERY 3 WEEKS. DOSAGE FORM REPORTED:INFUSION
     Route: 042
     Dates: start: 20080307, end: 20080326
  4. LANSOPRAZOLE [Concomitant]
     Dates: start: 20080311, end: 20080323
  5. HEMOCONTIN [Concomitant]
     Dosage: TTD REPORTED AS ^ 1T^
     Dates: start: 20080312, end: 20080323
  6. HEMOCONTIN [Concomitant]
     Dosage: TTD REPORTED AS ^ 1T^
     Dates: start: 20080312, end: 20080323
  7. HEMOCONTIN [Concomitant]
     Dosage: TTD REPORTED AS ^ 1T^
     Dates: start: 20080312, end: 20080323
  8. HEMOCONTIN [Concomitant]
     Dosage: TTD REPORTED AS ^ 1T^
     Dates: start: 20080312, end: 20080323
  9. SUCRALFATE [Concomitant]
     Dosage: DRUG NAME REPORTED AS SUCRALFATE SUSPENSION
     Dates: start: 20080311, end: 20080323
  10. NICORANDIL [Concomitant]
     Dates: start: 20040615, end: 20080323
  11. ATACAND HCT [Concomitant]
     Dosage: TDD REPORTED AS ^1T^
     Dates: start: 20040101, end: 20080323
  12. ATACAND HCT [Concomitant]
     Dosage: TDD REPORTED AS ^1T^
     Dates: start: 20040101, end: 20080323
  13. TRIMETAZIDINE HCL [Concomitant]
     Dates: start: 20040101
  14. TRIMETAZIDINE HCL [Concomitant]
     Dates: start: 20080315
  15. METFORMIN HCL [Concomitant]
     Dates: start: 20040101, end: 20080323
  16. ASPIRIN [Concomitant]
     Dates: start: 20040101, end: 20080323
  17. GINKGO BILOBA [Concomitant]
     Dosage: DRUG NAME REPORTED AS GINKGO BILOBA EXT.
     Dates: start: 20080311, end: 20080323
  18. ALLEGRA D 24 HOUR [Concomitant]
     Dosage: TTD REPORTED AS ^2T^
     Dates: start: 20080311, end: 20080323
  19. ALLEGRA D 24 HOUR [Concomitant]
     Dosage: TTD REPORTED AS ^2T^
     Dates: start: 20080311, end: 20080323
  20. MEGESTROL ACETATE [Concomitant]
     Dosage: DRUG NAME REPORTED AS MEGESTROL ACETATE 40 MG/ML.
     Dates: start: 20080311, end: 20080323
  21. COUGH SYRUP [Concomitant]
     Dates: start: 20080311, end: 20080323
  22. BROMHEXINE HCL [Concomitant]
     Dates: start: 20080311, end: 20080323
  23. POLYSTYRENE SULFONATE [Concomitant]
     Dosage: DRUG NAME REPORTED AS POLYSTYRENE SULFONATE CALCIUM.
     Dates: start: 20080311, end: 20080323

REACTIONS (7)
  - ANAEMIA [None]
  - BLOOD CREATININE INCREASED [None]
  - BLOOD UREA INCREASED [None]
  - GASTROINTESTINAL HAEMORRHAGE [None]
  - HYPERKALAEMIA [None]
  - HYPOVOLAEMIC SHOCK [None]
  - OLIGURIA [None]
